FAERS Safety Report 13496693 (Version 2)
Quarter: 2017Q2

REPORT INFORMATION
  Report Type: Spontaneous
  Country: US (occurrence: US)
  Receive Date: 20170428
  Receipt Date: 20170428
  Transmission Date: 20170830
  Serious: No
  Sender: FDA-Public Use
  Company Number: US-JAZZ-2017-US-004211

PATIENT
  Age: 49 Year
  Sex: Female

DRUGS (11)
  1. TRAZODONE [Concomitant]
     Active Substance: TRAZODONE HYDROCHLORIDE
  2. ERYTHROMYCIN. [Concomitant]
     Active Substance: ERYTHROMYCIN
  3. AZELEX [Concomitant]
     Active Substance: AZELAIC ACID
  4. BUDESONIDE. [Concomitant]
     Active Substance: BUDESONIDE
  5. TYLENOL WITH CODEINE [Concomitant]
     Active Substance: ACETAMINOPHEN\CODEINE PHOSPHATE
  6. DOXYCYCLINE HYCLATE. [Concomitant]
     Active Substance: DOXYCYCLINE HYCLATE
  7. MODAFINIL. [Concomitant]
     Active Substance: MODAFINIL
  8. XYREM [Suspect]
     Active Substance: SODIUM OXYBATE
     Indication: NARCOLEPSY
     Dosage: 3.75G, BID
     Route: 048
     Dates: start: 200210, end: 2004
  9. XYREM [Suspect]
     Active Substance: SODIUM OXYBATE
     Indication: CATAPLEXY
     Dosage: 4.5G, BID
     Route: 048
     Dates: start: 200403
  10. RHINOCORT                          /00212602/ [Concomitant]
  11. MIRVASO [Concomitant]
     Active Substance: BRIMONIDINE TARTRATE

REACTIONS (1)
  - Wisdom teeth removal [Unknown]

NARRATIVE: CASE EVENT DATE: 20170329
